FAERS Safety Report 5125033-1 (Version None)
Quarter: 2006Q4

REPORT INFORMATION
  Report Type: 
  Country: None (occurrence: None)
  Receive Date: 20061011
  Receipt Date: 20061002
  Transmission Date: 20070319
  Serious: Yes (Life-Threatening)
  Sender: FDA-Public Use
  Company Number: GB-MERCK-0610GBR00007

PATIENT
  Age: 46 Year
  Sex: Male

DRUGS (7)
  1. ZOCOR [Suspect]
     Indication: HYPERCHOLESTEROLAEMIA
     Route: 048
  2. CLOZAPINE [Suspect]
     Route: 048
     Dates: start: 19951031, end: 20040809
  3. RAMIPRIL [Suspect]
     Indication: HYPERTENSION
     Route: 048
  4. CLOZAPINE [Suspect]
     Route: 048
     Dates: start: 20040810, end: 20060101
  5. AMISULPRIDE [Concomitant]
     Indication: SCHIZOPHRENIA
     Route: 048
     Dates: start: 20040831, end: 20060225
  6. ASPIRIN [Concomitant]
     Indication: PROPHYLAXIS
     Route: 065
  7. ATENOLOL [Concomitant]
     Indication: HYPERTENSION
     Route: 065

REACTIONS (2)
  - PANCREATITIS [None]
  - RENAL FAILURE [None]
